FAERS Safety Report 11528454 (Version 1)
Quarter: 2015Q3

REPORT INFORMATION
  Report Type: Spontaneous
  Country: US (occurrence: US)
  Receive Date: 20150921
  Receipt Date: 20150921
  Transmission Date: 20151125
  Serious: No
  Sender: FDA-Public Use
  Company Number: US-TEVA-587126USA

PATIENT
  Sex: Female

DRUGS (1)
  1. CLONAZEPAM. [Suspect]
     Active Substance: CLONAZEPAM
     Indication: RESTLESS LEGS SYNDROME
     Route: 065
     Dates: start: 20150716

REACTIONS (7)
  - Insomnia [Unknown]
  - Drug ineffective for unapproved indication [Unknown]
  - Withdrawal syndrome [Unknown]
  - Restless legs syndrome [Unknown]
  - Tremor [Unknown]
  - Feeling hot [Unknown]
  - Product substitution issue [Unknown]

NARRATIVE: CASE EVENT DATE: 2015
